FAERS Safety Report 8268857-4 (Version None)
Quarter: 2012Q2

REPORT INFORMATION
  Report Type: 
  Country: None (occurrence: None)
  Receive Date: 20120409
  Receipt Date: 20120409
  Transmission Date: 20120825
  Serious: No
  Sender: FDA-Public Use
  Company Number: None

PATIENT
  Age: 48 Year
  Sex: Male
  Weight: 72.574 kg

DRUGS (2)
  1. FINASTERIDE [Concomitant]
     Indication: ALOPECIA
     Dosage: 1MG
     Route: 048
  2. PROPECIA [Suspect]
     Indication: ALOPECIA
     Dosage: 1.0 MG
     Route: 048

REACTIONS (9)
  - LOSS OF LIBIDO [None]
  - HYPOTHYROIDISM [None]
  - INSOMNIA [None]
  - PANIC ATTACK [None]
  - DRY SKIN [None]
  - DEPRESSION [None]
  - FATIGUE [None]
  - ERECTILE DYSFUNCTION [None]
  - HOT FLUSH [None]
